FAERS Safety Report 19025231 (Version 2)
Quarter: 2021Q3

REPORT INFORMATION
  Report Type: Spontaneous
  Country: JP (occurrence: JP)
  Receive Date: 20210318
  Receipt Date: 20210910
  Transmission Date: 20211014
  Serious: Yes (Hospitalization)
  Sender: FDA-Public Use
  Company Number: JP-MYLANLABS-2021M1015472

PATIENT
  Age: 72 Year
  Sex: Female

DRUGS (4)
  1. AMPICILLIN/SULBACTAM ACTAVIS [Suspect]
     Active Substance: AMPICILLIN SODIUM\SULBACTAM SODIUM
     Indication: INFECTION
     Route: 065
  2. ACETAMINOPHEN. [Suspect]
     Active Substance: ACETAMINOPHEN
     Indication: PAIN IN JAW
     Route: 065
  3. LOXOPROFEN EMEC [Suspect]
     Active Substance: LOXOPROFEN
     Indication: PAIN IN JAW
     Dosage: 60 MILLIGRAM, ADDED WHEN THE PATIENT FELT A SURGE OF PAIN
     Route: 065
  4. PREGABALIN. [Suspect]
     Active Substance: PREGABALIN
     Indication: PAIN
     Route: 065

REACTIONS (1)
  - Drug ineffective [Unknown]
